FAERS Safety Report 21219036 (Version 3)
Quarter: 2022Q3

REPORT INFORMATION
  Report Type: Report from Study
  Country: AR (occurrence: AR)
  Receive Date: 20220816
  Receipt Date: 20220912
  Transmission Date: 20221027
  Serious: No
  Sender: FDA-Public Use
  Company Number: AR-JNJFOC-20220650497

PATIENT
  Age: 23 Year
  Sex: Female
  Weight: 82 kg

DRUGS (2)
  1. STELARA [Suspect]
     Active Substance: USTEKINUMAB
     Indication: Crohn^s disease
     Dosage: STRENGTH: 90.00 MG/ML
     Route: 058
     Dates: start: 20210503
  2. STELARA [Suspect]
     Active Substance: USTEKINUMAB
     Route: 058
     Dates: start: 2022

REACTIONS (3)
  - Drug ineffective [Unknown]
  - Off label use [Unknown]
  - Device deployment issue [Unknown]

NARRATIVE: CASE EVENT DATE: 20220101
